FAERS Safety Report 6995099-2 (Version None)
Quarter: 2010Q3

REPORT INFORMATION
  Report Type: 
  Country: None (occurrence: None)
  Receive Date: 20100915
  Receipt Date: 20100907
  Transmission Date: 20110219
  Serious: Yes (Death, Other)
  Sender: FDA-Public Use
  Company Number: 018367

PATIENT
  Sex: Female
  Weight: 77.1115 kg

DRUGS (23)
  1. ROTIGOTINE [Suspect]
     Indication: PARKINSON'S DISEASE
     Dosage: (4 MG QD TRANSDERMAL)
     Route: 062
     Dates: start: 20081218, end: 20100827
  2. ALLEGRA [Concomitant]
  3. PROTONIX [Concomitant]
  4. VISICARE /01735901/ [Concomitant]
  5. ATIVAN [Concomitant]
  6. METFORMIN [Concomitant]
  7. GLIPIZIDE [Concomitant]
  8. SUDAFED /00076302/ [Concomitant]
  9. COENZYME Q10 /00517201/ [Concomitant]
  10. SINEMET [Concomitant]
  11. STALEVO 100 [Concomitant]
  12. TRAZODONE HCL [Concomitant]
  13. MELOXICAM [Concomitant]
  14. ADVIL LIQUI-GELS [Concomitant]
  15. FOSAMAX [Concomitant]
  16. ASPIRIN [Concomitant]
  17. HYDROCODONE [Concomitant]
  18. TYLENOL (CAPLET) [Concomitant]
  19. APOKYN [Concomitant]
  20. MIDODRINE HYDROCHLORIDE [Concomitant]
  21. STALEVO 100 [Concomitant]
  22. PRILOSEC [Concomitant]
  23. SINEMET CR [Concomitant]

REACTIONS (9)
  - ACUTE MYOCARDIAL INFARCTION [None]
  - CARDIAC ARREST [None]
  - FACIAL BONES FRACTURE [None]
  - FALL [None]
  - HAEMATOMA [None]
  - MUSCULOSKELETAL STIFFNESS [None]
  - REFUSAL OF TREATMENT BY PATIENT [None]
  - SUDDEN CARDIAC DEATH [None]
  - TREATMENT NONCOMPLIANCE [None]
